FAERS Safety Report 4969923-9 (Version None)
Quarter: 2006Q1

REPORT INFORMATION
  Report Type: 
  Country: None (occurrence: None)
  Receive Date: 20060202
  Receipt Date: 20050210
  Transmission Date: 20060701
  Serious: Yes (Other)
  Sender: FDA-Public Use
  Company Number: US-2005-002063

PATIENT
  Age: 41 Year
  Sex: Female
  Weight: 54 kg

DRUGS (4)
  1. MIRENA [Suspect]
     Dosage: 20 UG/DAY, CONT, INTRA-UTERINE
     Route: 015
     Dates: start: 20040922, end: 20041224
  2. FLINSTONES (VITAMINS NOS) [Concomitant]
  3. FOLIC ACID [Concomitant]
  4. ROBITUSSIN AC ^ROBBIN^ (CODEINE PHOSPHATE, GUAIFENESIN) [Concomitant]

REACTIONS (6)
  - COUGH [None]
  - PELVIC HAEMORRHAGE [None]
  - PELVIC PERITONEAL ADHESIONS [None]
  - PROCEDURAL PAIN [None]
  - UTERINE PERFORATION [None]
  - VAGINAL INFECTION [None]
